FAERS Safety Report 19042007 (Version 1)
Quarter: 2021Q1

REPORT INFORMATION
  Report Type: Spontaneous
  Country: US (occurrence: US)
  Receive Date: 20210322
  Receipt Date: 20210322
  Transmission Date: 20210420
  Serious: Yes (Other)
  Sender: FDA-Public Use
  Company Number: US-SPECGX-T202100547

PATIENT
  Age: 29 Year
  Sex: Female

DRUGS (1)
  1. OXYCODONE [Suspect]
     Active Substance: OXYCODONE
     Indication: PRODUCT USED FOR UNKNOWN INDICATION
     Dosage: UNK
     Route: 065

REACTIONS (7)
  - Hypothermia [Unknown]
  - Pupil fixed [Recovering/Resolving]
  - Endotracheal intubation [Unknown]
  - Hypotension [Unknown]
  - Areflexia [Recovering/Resolving]
  - Overdose [Unknown]
  - Unresponsive to stimuli [Unknown]
